FAERS Safety Report 19898017 (Version 1)
Quarter: 2021Q3

REPORT INFORMATION
  Report Type: Spontaneous
  Country: US (occurrence: US)
  Receive Date: 20210930
  Receipt Date: 20210930
  Transmission Date: 20211014
  Serious: No
  Sender: FDA-Public Use
  Company Number: US-JNJFOC-20210932435

PATIENT
  Age: 8 Decade
  Sex: Female

DRUGS (1)
  1. WOMENS ROGAINE UNSCENTED [Suspect]
     Active Substance: MINOXIDIL
     Indication: ALOPECIA
     Dosage: DOSE: HALF A CAPFUL
     Route: 061
     Dates: start: 2019

REACTIONS (2)
  - Alopecia [Unknown]
  - Product container issue [Unknown]

NARRATIVE: CASE EVENT DATE: 202108
